FAERS Safety Report 6078150-6 (Version None)
Quarter: 2009Q1

REPORT INFORMATION
  Report Type: 
  Country: None (occurrence: None)
  Receive Date: 20090213
  Receipt Date: 20090206
  Transmission Date: 20090719
  Serious: Yes (Hospitalization, Other)
  Sender: FDA-Public Use
  Company Number: JP-B.I. PHARMACEUTICALS,INC./RIDGEFIELD-2009-BP-01565NB

PATIENT
  Age: 4 Decade
  Sex: Female

DRUGS (4)
  1. BI-SIFROL TABLETS [Suspect]
     Indication: PARKINSON'S DISEASE
     Route: 048
  2. CARBIDOPA + LEVODOPA [Concomitant]
     Route: 048
  3. DEPAS [Concomitant]
     Route: 048
  4. LUDIOMIL [Concomitant]
     Route: 048

REACTIONS (2)
  - DRUG ERUPTION [None]
  - NEOPLASM MALIGNANT [None]
